FAERS Safety Report 7118429-X (Version None)
Quarter: 2010Q4

REPORT INFORMATION
  Report Type: 
  Country: None (occurrence: None)
  Receive Date: 20101123
  Receipt Date: 20101119
  Transmission Date: 20110411
  Serious: Yes (Hospitalization)
  Sender: FDA-Public Use
  Company Number: DE-CEPHALON-2010006060

PATIENT
  Sex: Male
  Weight: 86 kg

DRUGS (2)
  1. TREANDA [Suspect]
     Indication: NON-HODGKIN'S LYMPHOMA
     Route: 041
     Dates: start: 20050228, end: 20050301
  2. RITUXIMAB [Suspect]
     Indication: NON-HODGKIN'S LYMPHOMA
     Dates: start: 20050228, end: 20050228

REACTIONS (1)
  - DEVICE RELATED INFECTION [None]
